FAERS Safety Report 4800131-8 (Version None)
Quarter: 2005Q4

REPORT INFORMATION
  Report Type: 
  Country: None (occurrence: None)
  Receive Date: 20051017
  Receipt Date: 20051010
  Transmission Date: 20060501
  Serious: Yes (Hospitalization, Other)
  Sender: FDA-Public Use
  Company Number: 05-GEN-101

PATIENT
  Sex: Female

DRUGS (2)
  1. PAROXETINE HCL [Suspect]
     Indication: DEPRESSION
     Dosage: 30MG PER DAY
  2. CHLORPROMAZINE [Suspect]
     Indication: DEPRESSION
     Dosage: 100MG PER DAY

REACTIONS (17)
  - CONVULSION [None]
  - DRUG EXPOSURE DURING PREGNANCY [None]
  - DYSKINESIA [None]
  - FEELING JITTERY [None]
  - HYPERREFLEXIA [None]
  - HYPERTONIA NEONATAL [None]
  - HYPOTONIA [None]
  - INFECTION [None]
  - NEONATAL DISORDER [None]
  - NEONATAL RESPIRATORY DISTRESS SYNDROME [None]
  - NEONATAL TACHYCARDIA [None]
  - OPISTHOTONUS [None]
  - POLYCYTHAEMIA [None]
  - POSTURING [None]
  - PSYCHOMOTOR HYPERACTIVITY [None]
  - PYREXIA [None]
  - TREMOR [None]
